FAERS Safety Report 17367976 (Version 4)
Quarter: 2020Q4

REPORT INFORMATION
  Report Type: Spontaneous
  Country: US (occurrence: US)
  Receive Date: 20200204
  Receipt Date: 20201124
  Transmission Date: 20210113
  Serious: Yes (Other)
  Sender: FDA-Public Use
  Company Number: NVSC2020US028650

PATIENT
  Sex: Male

DRUGS (2)
  1. TAFINLAR [Suspect]
     Active Substance: DABRAFENIB MESYLATE
     Indication: MALIGNANT NEOPLASM OF CONJUNCTIVA
     Dosage: 150 MG, BID
     Route: 048
     Dates: start: 20200109
  2. MEKINIST [Suspect]
     Active Substance: TRAMETINIB DIMETHYL SULFOXIDE
     Indication: MALIGNANT NEOPLASM OF CONJUNCTIVA
     Dosage: 2 MG, QD
     Route: 048
     Dates: start: 20200109

REACTIONS (4)
  - Blood glucose increased [Unknown]
  - Product use in unapproved indication [Unknown]
  - Oedema peripheral [Unknown]
  - Nephrolithiasis [Unknown]
